FAERS Safety Report 6895542-3 (Version None)
Quarter: 2010Q3

REPORT INFORMATION
  Report Type: 
  Country: None (occurrence: None)
  Receive Date: 20100802
  Receipt Date: 20100726
  Transmission Date: 20110219
  Serious: Yes (Death)
  Sender: FDA-Public Use
  Company Number: PHHY2010JP45247

PATIENT
  Age: 17 Year
  Sex: Female
  Weight: 88 kg

DRUGS (5)
  1. TEGRETOL [Suspect]
     Indication: STATUS EPILEPTICUS
     Dosage: UNK, UNK
  2. PHENYTOIN SODIUM [Suspect]
     Dosage: UNK,UNK
  3. DORMICUM                                /SWE/ [Suspect]
     Dosage: UNK,UNK
  4. DIPRIVAN [Suspect]
     Dosage: UNK,UNK
  5. ACYCLOVIR [Concomitant]
     Indication: ENCEPHALITIS VIRAL
     Dosage: 750 MG, TID

REACTIONS (2)
  - DRUG EFFECT DECREASED [None]
  - SEPSIS [None]
